FAERS Safety Report 19172773 (Version 5)
Quarter: 2022Q1

REPORT INFORMATION
  Report Type: Report from Study
  Country: JP (occurrence: JP)
  Receive Date: 20210423
  Receipt Date: 20220204
  Transmission Date: 20220423
  Serious: Yes (Hospitalization, Other)
  Sender: FDA-Public Use
  Company Number: JP-CHUGAI-A2020056285ROCHE

PATIENT
  Age: 49 Year
  Sex: Male
  Weight: 76 kg

DRUGS (31)
  1. BEVACIZUMAB [Suspect]
     Active Substance: BEVACIZUMAB
     Indication: Rectal adenocarcinoma
     Dosage: DAY1
     Route: 041
     Dates: start: 20201202, end: 20201202
  2. BEVACIZUMAB [Suspect]
     Active Substance: BEVACIZUMAB
     Dosage: DAY1
     Route: 041
     Dates: start: 20210106, end: 20210310
  3. BEVACIZUMAB [Suspect]
     Active Substance: BEVACIZUMAB
     Dosage: DAY1
     Route: 041
     Dates: start: 20210407, end: 20210407
  4. BEVACIZUMAB [Suspect]
     Active Substance: BEVACIZUMAB
     Route: 041
     Dates: start: 20210428, end: 20211013
  5. BEVACIZUMAB [Suspect]
     Active Substance: BEVACIZUMAB
     Route: 041
     Dates: start: 20211110
  6. CAPECITABINE [Suspect]
     Active Substance: CAPECITABINE
     Indication: Rectal adenocarcinoma
     Dosage: DAY1-15
     Route: 048
     Dates: start: 20201202, end: 20201216
  7. CAPECITABINE [Suspect]
     Active Substance: CAPECITABINE
     Dosage: DAY1-15
     Route: 048
     Dates: start: 20210106, end: 20210324
  8. CAPECITABINE [Suspect]
     Active Substance: CAPECITABINE
     Dosage: DAY1-15
     Route: 048
     Dates: start: 20210407, end: 20211027
  9. CAPECITABINE [Suspect]
     Active Substance: CAPECITABINE
     Route: 048
     Dates: start: 20211110
  10. OXALIPLATIN [Concomitant]
     Active Substance: OXALIPLATIN
     Indication: Rectal adenocarcinoma
     Dosage: DAY1
     Route: 041
     Dates: start: 20201202, end: 20201202
  11. OXALIPLATIN [Concomitant]
     Active Substance: OXALIPLATIN
     Dosage: DAY1
     Route: 041
     Dates: start: 20210106, end: 20210310
  12. OXALIPLATIN [Concomitant]
     Active Substance: OXALIPLATIN
     Dosage: DAY1
     Route: 041
     Dates: start: 20210407
  13. IRINOTECAN HYDROCHLORIDE [Concomitant]
     Active Substance: IRINOTECAN HYDROCHLORIDE
     Indication: Rectal adenocarcinoma
     Dosage: DAY1
     Route: 041
     Dates: start: 20201202, end: 20201202
  14. IRINOTECAN HYDROCHLORIDE [Concomitant]
     Active Substance: IRINOTECAN HYDROCHLORIDE
     Dosage: DAY1
     Route: 041
     Dates: start: 20210106, end: 20210310
  15. IRINOTECAN HYDROCHLORIDE [Concomitant]
     Active Substance: IRINOTECAN HYDROCHLORIDE
     Dosage: DAY1
     Route: 041
     Dates: start: 20210407
  16. PALONOSETRON HYDROCHLORIDE [Concomitant]
     Active Substance: PALONOSETRON HYDROCHLORIDE
     Dosage: DAY1
     Route: 042
     Dates: start: 20201202, end: 20201202
  17. PALONOSETRON HYDROCHLORIDE [Concomitant]
     Active Substance: PALONOSETRON HYDROCHLORIDE
     Dosage: DAY1
     Route: 042
     Dates: start: 20210106, end: 20210310
  18. PALONOSETRON HYDROCHLORIDE [Concomitant]
     Active Substance: PALONOSETRON HYDROCHLORIDE
     Dosage: DAY1
     Route: 042
     Dates: start: 20210407
  19. DEXAMETHASONE SODIUM PHOSPHATE [Concomitant]
     Active Substance: DEXAMETHASONE SODIUM PHOSPHATE
     Dosage: DAY1
     Route: 042
     Dates: start: 20201202, end: 20201202
  20. DEXAMETHASONE SODIUM PHOSPHATE [Concomitant]
     Active Substance: DEXAMETHASONE SODIUM PHOSPHATE
     Dosage: DAY1
     Route: 042
     Dates: start: 20210106, end: 20210310
  21. DEXAMETHASONE SODIUM PHOSPHATE [Concomitant]
     Active Substance: DEXAMETHASONE SODIUM PHOSPHATE
     Dosage: DAY1
     Route: 042
     Dates: start: 20210407
  22. DEXAMETHASONE [Concomitant]
     Active Substance: DEXAMETHASONE
     Dosage: DAY2-4
     Route: 048
     Dates: start: 20201203, end: 20201205
  23. DEXAMETHASONE [Concomitant]
     Active Substance: DEXAMETHASONE
     Dosage: DAY2-4
     Route: 048
     Dates: start: 20210107, end: 20210313
  24. DEXAMETHASONE [Concomitant]
     Active Substance: DEXAMETHASONE
     Dosage: DAY2-4
     Route: 048
     Dates: start: 20210408
  25. APREPITANT [Concomitant]
     Active Substance: APREPITANT
     Dosage: DAY1
     Route: 048
     Dates: start: 20201202, end: 20201202
  26. APREPITANT [Concomitant]
     Active Substance: APREPITANT
     Dosage: DAY2-3
     Route: 048
     Dates: start: 20201203, end: 20201204
  27. APREPITANT [Concomitant]
     Active Substance: APREPITANT
     Dosage: DAY1
     Route: 048
     Dates: start: 20210106, end: 20210310
  28. APREPITANT [Concomitant]
     Active Substance: APREPITANT
     Dosage: DAY2-3
     Route: 048
     Dates: start: 20210107, end: 20210312
  29. APREPITANT [Concomitant]
     Active Substance: APREPITANT
     Dosage: DAY1
     Route: 048
     Dates: start: 20210407
  30. APREPITANT [Concomitant]
     Active Substance: APREPITANT
     Dosage: DAY2-3
     Route: 048
     Dates: start: 20210408
  31. LOPERAMIDE HYDROCHLORIDE [Concomitant]
     Active Substance: LOPERAMIDE HYDROCHLORIDE
     Dosage: DOSAGE IS UNCERTAIN.
     Route: 065

REACTIONS (3)
  - Embolism venous [Recovered/Resolved]
  - Hypertension [Recovered/Resolved]
  - COVID-19 [Unknown]

NARRATIVE: CASE EVENT DATE: 20210127
